FAERS Safety Report 20590431 (Version 1)
Quarter: 2022Q1

REPORT INFORMATION
  Report Type: Spontaneous
  Country: IT (occurrence: IT)
  Receive Date: 20220314
  Receipt Date: 20220314
  Transmission Date: 20220423
  Serious: Yes (Hospitalization, Other)
  Sender: FDA-Public Use
  Company Number: None

PATIENT
  Age: 65 Year
  Sex: Female

DRUGS (2)
  1. DOXORUBICIN HYDROCHLORIDE [Suspect]
     Active Substance: DOXORUBICIN HYDROCHLORIDE
     Indication: Sarcoma metastatic
     Route: 042
     Dates: start: 20220105, end: 20220128
  2. IFOSFAMIDE [Suspect]
     Active Substance: IFOSFAMIDE
     Indication: Sarcoma metastatic
     Route: 042
     Dates: start: 20220105, end: 20220128

REACTIONS (4)
  - Encephalopathy [Recovered/Resolved]
  - Hallucination, visual [Recovered/Resolved]
  - Delusion [Recovered/Resolved]
  - Psychotic disorder [Recovered/Resolved]

NARRATIVE: CASE EVENT DATE: 20220128
